FAERS Safety Report 11574301 (Version 2)
Quarter: 2015Q4

REPORT INFORMATION
  Report Type: Spontaneous
  Country: IT (occurrence: IT)
  Receive Date: 20150930
  Receipt Date: 20151026
  Transmission Date: 20160304
  Serious: Yes (Other)
  Sender: FDA-Public Use
  Company Number: IT-ACCORD-033924

PATIENT
  Age: 67 Year
  Sex: Female
  Weight: 52 kg

DRUGS (1)
  1. GEMCITABINE/GEMCITABINE HYDROCHLORIDE [Suspect]
     Active Substance: GEMCITABINE\GEMCITABINE HYDROCHLORIDE
     Indication: ADENOCARCINOMA PANCREAS
     Route: 042
     Dates: start: 20150612

REACTIONS (6)
  - Petechiae [Not Recovered/Not Resolved]
  - Anaemia [Not Recovered/Not Resolved]
  - Thrombocytopenia [Recovering/Resolving]
  - Pyrexia [Recovering/Resolving]
  - Diarrhoea [Recovering/Resolving]
  - Constipation [Recovering/Resolving]

NARRATIVE: CASE EVENT DATE: 20150624
